FAERS Safety Report 6702763-9 (Version None)
Quarter: 2010Q2

REPORT INFORMATION
  Report Type: 
  Country: None (occurrence: None)
  Receive Date: 20100429
  Receipt Date: 20100426
  Transmission Date: 20101027
  Serious: Yes (Death, Hospitalization, Other)
  Sender: FDA-Public Use
  Company Number: PHHY2010CA15256

PATIENT
  Sex: Male

DRUGS (2)
  1. SANDOSTATIN [Suspect]
     Indication: HEPATIC NEOPLASM MALIGNANT
     Dosage: UNK
     Route: 058
     Dates: start: 20100301
  2. SANDOSTATIN LAR [Suspect]
     Indication: HEPATIC NEOPLASM MALIGNANT
     Dosage: 30 MG EVERY 4 WEEKS
     Route: 030
     Dates: start: 20100308, end: 20100405

REACTIONS (12)
  - ABDOMINAL DISTENSION [None]
  - BLOOD PRESSURE DECREASED [None]
  - DEATH [None]
  - DIZZINESS [None]
  - DYSPNOEA [None]
  - EPISTAXIS [None]
  - JAUNDICE [None]
  - NAUSEA [None]
  - RENAL FAILURE [None]
  - SWELLING [None]
  - VOMITING [None]
  - WAIST CIRCUMFERENCE INCREASED [None]
